FAERS Safety Report 14067105 (Version 1)
Quarter: 2017Q4

REPORT INFORMATION
  Report Type: Report from Study
  Country: JP (occurrence: JP)
  Receive Date: 20171009
  Receipt Date: 20171009
  Transmission Date: 20180321
  Serious: Yes (Hospitalization, Other)
  Sender: FDA-Public Use
  Company Number: JP-BRISTOL-MYERS SQUIBB COMPANY-10629285

PATIENT
  Age: 33 Year
  Sex: Male

DRUGS (5)
  1. CRIXIVAN [Suspect]
     Active Substance: INDINAVIR SULFATE
     Indication: ACQUIRED IMMUNODEFICIENCY SYNDROME
     Dosage: 2.4 G, UNK
     Route: 048
     Dates: start: 19990708, end: 20000331
  2. STAVUDINE. [Suspect]
     Active Substance: STAVUDINE
     Indication: PRODUCT USED FOR UNKNOWN INDICATION
     Dosage: 60 MG, UNK
     Route: 048
     Dates: start: 19991029, end: 20000331
  3. PYRAZINAMIDE. [Suspect]
     Active Substance: PYRAZINAMIDE
     Indication: PRODUCT USED FOR UNKNOWN INDICATION
     Dosage: 2 G, UNK
     Route: 042
     Dates: start: 19990928, end: 19991126
  4. STAVUDINE. [Suspect]
     Active Substance: STAVUDINE
     Indication: ACQUIRED IMMUNODEFICIENCY SYNDROME
     Dosage: 80 MG, UNK
     Route: 048
     Dates: start: 19990708, end: 19991028
  5. EPIVIR [Suspect]
     Active Substance: LAMIVUDINE
     Indication: ACQUIRED IMMUNODEFICIENCY SYNDROME
     Dosage: 300 MG, UNK
     Route: 048
     Dates: start: 19990708, end: 20000331

REACTIONS (4)
  - Hyperuricaemia [Recovered/Resolved]
  - Retinal detachment [Recovered/Resolved]
  - Urinary sediment abnormal [Recovering/Resolving]
  - Vitreous opacities [Recovered/Resolved]

NARRATIVE: CASE EVENT DATE: 19991001
